FAERS Safety Report 5846061-4 (Version None)
Quarter: 2008Q3

REPORT INFORMATION
  Report Type: 
  Country: None (occurrence: None)
  Receive Date: 20080814
  Receipt Date: 20080807
  Transmission Date: 20090109
  Serious: Yes (Other)
  Sender: FDA-Public Use
  Company Number: DE-PFIZER INC-2008047769

PATIENT
  Sex: Male

DRUGS (2)
  1. CHANTIX [Suspect]
     Indication: SMOKING CESSATION THERAPY
     Route: 048
  2. MARCUMAR [Interacting]
     Indication: PULMONARY EMBOLISM
     Route: 048

REACTIONS (3)
  - DRUG EFFECT INCREASED [None]
  - DRUG INTERACTION [None]
  - PROTHROMBIN TIME SHORTENED [None]
